FAERS Safety Report 7682832-X (Version None)
Quarter: 2011Q3

REPORT INFORMATION
  Report Type: 
  Country: None (occurrence: None)
  Receive Date: 20110812
  Receipt Date: 20110812
  Transmission Date: 20111222
  Serious: Yes (Hospitalization)
  Sender: FDA-Public Use
  Company Number: None

PATIENT
  Age: 64 Year
  Sex: Male

DRUGS (1)
  1. IRINOTECAN HCL [Suspect]
     Dosage: 265 MG QWEEK IV
     Route: 042
     Dates: start: 20100929, end: 20101029

REACTIONS (4)
  - NAUSEA [None]
  - VOMITING [None]
  - FEBRILE NEUTROPENIA [None]
  - DIARRHOEA [None]
